FAERS Safety Report 13644383 (Version 1)
Quarter: 2017Q2

REPORT INFORMATION
  Report Type: Spontaneous
  Country: US (occurrence: US)
  Receive Date: 20170612
  Receipt Date: 20170612
  Transmission Date: 20170830
  Serious: Yes (Other)
  Sender: FDA-Public Use
  Company Number: US-ROCHE-787617

PATIENT
  Sex: Male
  Weight: 79.5 kg

DRUGS (1)
  1. KLONOPIN [Suspect]
     Active Substance: CLONAZEPAM
     Indication: ANXIETY
     Dosage: 3/8 OF MG IN MORNING AND 2/8 OF MG EVENING, 5 YEARS
     Route: 048

REACTIONS (5)
  - Suicidal ideation [Unknown]
  - Agoraphobia [Unknown]
  - Influenza like illness [Unknown]
  - Anger [Unknown]
  - Toothache [Unknown]
